FAERS Safety Report 10689893 (Version 1)
Quarter: 2015Q1

REPORT INFORMATION
  Report Type: Spontaneous
  Country: US (occurrence: US)
  Receive Date: 20150105
  Receipt Date: 20150105
  Transmission Date: 20150720
  Serious: Yes (Other)
  Sender: FDA-Public Use
  Company Number: PHEH2014US025910

PATIENT
  Age: 10 Year
  Sex: Male
  Weight: 92 kg

DRUGS (2)
  1. FEMARA [Suspect]
     Active Substance: LETROZOLE
     Indication: BONE DISORDER
  2. FEMARA [Suspect]
     Active Substance: LETROZOLE
     Indication: PRECOCIOUS PUBERTY
     Dosage: 2.5 MG, QD
     Route: 048
     Dates: start: 20131202, end: 20140912

REACTIONS (2)
  - Pituitary tumour benign [Not Recovered/Not Resolved]
  - Product use issue [Unknown]

NARRATIVE: CASE EVENT DATE: 20131202
